FAERS Safety Report 16214687 (Version 1)
Quarter: 2019Q2

REPORT INFORMATION
  Report Type: Spontaneous
  Country: FR (occurrence: FR)
  Receive Date: 20190418
  Receipt Date: 20190418
  Transmission Date: 20190711
  Serious: Yes (Hospitalization)
  Sender: FDA-Public Use
  Company Number: PHHY2019FR087211

PATIENT
  Age: 75 Year
  Sex: Male
  Weight: 83 kg

DRUGS (6)
  1. ACICLOVIR [Suspect]
     Active Substance: ACYCLOVIR
     Indication: MENINGOENCEPHALITIS HERPETIC
     Dosage: 1720 MG, QD
     Route: 041
     Dates: start: 20190124
  2. VANCOMYCIN [Suspect]
     Active Substance: VANCOMYCIN
     Indication: ANTIBIOTIC THERAPY
     Dosage: UNK
     Route: 041
  3. AMIKACINE [Concomitant]
     Active Substance: AMIKACIN
     Indication: ANTIBIOTIC THERAPY
     Dosage: UNK
     Route: 041
  4. VESANOID [Concomitant]
     Active Substance: TRETINOIN
     Indication: ACUTE MYELOID LEUKAEMIA
     Dosage: UNK
     Route: 048
  5. TRISENOX [Concomitant]
     Active Substance: ARSENIC TRIOXIDE
     Indication: ACUTE MYELOID LEUKAEMIA
     Dosage: UNK
     Route: 041
  6. MEROPENEM ANHYDROUS [Concomitant]
     Active Substance: MEROPENEM ANHYDROUS
     Indication: ANTIBIOTIC THERAPY
     Route: 041

REACTIONS (1)
  - Drug reaction with eosinophilia and systemic symptoms [Not Recovered/Not Resolved]

NARRATIVE: CASE EVENT DATE: 20190211
